FAERS Safety Report 5367358-0 (Version None)
Quarter: 2007Q2

REPORT INFORMATION
  Report Type: 
  Country: None (occurrence: None)
  Receive Date: 20070622
  Receipt Date: 20060724
  Transmission Date: 20071010
  Serious: No
  Sender: FDA-Public Use
  Company Number: US-ASTRAZENECA-2006UW14951

PATIENT
  Age: 67 Year
  Sex: Female
  Weight: 39.9 kg

DRUGS (3)
  1. PULMICORT RESPULES [Suspect]
     Indication: EMPHYSEMA
     Route: 055
  2. PULMICORT RESPULES [Suspect]
     Route: 055
  3. ALBUTEROL WITH IPRATROPIUM BROMIDE [Concomitant]

REACTIONS (2)
  - DIZZINESS [None]
  - FALL [None]
